FAERS Safety Report 7768635-6 (Version None)
Quarter: 2011Q3

REPORT INFORMATION
  Report Type: 
  Country: None (occurrence: None)
  Receive Date: 20110922
  Receipt Date: 20110711
  Transmission Date: 20111222
  Serious: No
  Sender: FDA-Public Use
  Company Number: US-ASTRAZENECA-2011SE41344

PATIENT
  Age: 46 Year
  Sex: Female
  Weight: 81.6 kg

DRUGS (2)
  1. SEROQUEL [Suspect]
     Indication: BIPOLAR I DISORDER
     Route: 048
     Dates: start: 20060101, end: 20110705
  2. SEROQUEL [Suspect]
     Indication: SLEEP DISORDER
     Route: 048
     Dates: start: 20060101, end: 20110705

REACTIONS (6)
  - NAUSEA [None]
  - HYPERHIDROSIS [None]
  - DRUG DOSE OMISSION [None]
  - FATIGUE [None]
  - DRUG PRESCRIBING ERROR [None]
  - INSOMNIA [None]
